FAERS Safety Report 6887120-7 (Version None)
Quarter: 2010Q3

REPORT INFORMATION
  Report Type: 
  Country: None (occurrence: None)
  Receive Date: 20100730
  Receipt Date: 20100722
  Transmission Date: 20110219
  Serious: Yes (Hospitalization, Other)
  Sender: FDA-Public Use
  Company Number: US-SANOFI-AVENTIS-2010SA034087

PATIENT
  Age: 62 Year
  Sex: Male
  Weight: 79.5 kg

DRUGS (7)
  1. PLAVIX [Suspect]
     Indication: MYOCARDIAL INFARCTION
     Route: 048
     Dates: start: 20080104, end: 20100601
  2. PLAVIX [Suspect]
     Route: 048
     Dates: start: 20080104, end: 20100601
  3. VASOTEC [Concomitant]
     Indication: BLOOD PRESSURE
     Dates: start: 20080104
  4. LASIX [Concomitant]
     Dates: start: 20080318
  5. COREG [Concomitant]
     Dates: start: 20080104
  6. SIMVASTATIN [Concomitant]
     Dates: start: 20080104
  7. ASPIRIN [Concomitant]
     Indication: THROMBOSIS PROPHYLAXIS
     Dates: start: 20080104

REACTIONS (5)
  - CARDIAC FAILURE CONGESTIVE [None]
  - CORONARY ARTERY OCCLUSION [None]
  - DEVICE OCCLUSION [None]
  - DYSPNOEA [None]
  - NO THERAPEUTIC RESPONSE [None]
